FAERS Safety Report 7040992-8 (Version None)
Quarter: 2010Q4

REPORT INFORMATION
  Report Type: 
  Country: None (occurrence: None)
  Receive Date: 20101013
  Receipt Date: 20101004
  Transmission Date: 20110411
  Serious: Yes (Hospitalization, Other)
  Sender: FDA-Public Use
  Company Number: US-ABBOTT-08P-163-0452996-00

PATIENT
  Sex: Female
  Weight: 81.992 kg

DRUGS (3)
  1. SYNTHROID [Suspect]
     Indication: HYPOTHYROIDISM
     Route: 048
  2. SYNTHROID [Suspect]
  3. SYNTHROID [Suspect]
     Indication: HYPOTHYROIDISM
     Route: 048
     Dates: start: 20080327

REACTIONS (31)
  - AMENORRHOEA [None]
  - AMNESIA [None]
  - ANXIETY [None]
  - BREAST CYST [None]
  - CHILLS [None]
  - CONSTIPATION [None]
  - DELUSION [None]
  - DIARRHOEA [None]
  - DIZZINESS [None]
  - EYE PAIN [None]
  - FATIGUE [None]
  - HALLUCINATION [None]
  - HEART RATE IRREGULAR [None]
  - HYPOMANIA [None]
  - INSOMNIA [None]
  - IRRITABILITY [None]
  - LIBIDO DECREASED [None]
  - MANIA [None]
  - MOOD SWINGS [None]
  - OSTEOPENIA [None]
  - PALPITATIONS [None]
  - PARANOIA [None]
  - POLLAKIURIA [None]
  - POOR QUALITY DRUG ADMINISTERED [None]
  - PRODUCT COLOUR ISSUE [None]
  - PRODUCT CONTAMINATION [None]
  - PSYCHOTIC DISORDER [None]
  - SKIN LESION [None]
  - TEMPERATURE INTOLERANCE [None]
  - TINNITUS [None]
  - WEIGHT ABNORMAL [None]
